FAERS Safety Report 7135210-6 (Version None)
Quarter: 2010Q4

REPORT INFORMATION
  Report Type: 
  Country: None (occurrence: None)
  Receive Date: 20101203
  Receipt Date: 20101129
  Transmission Date: 20110411
  Serious: No
  Sender: FDA-Public Use
  Company Number: US-PFIZER INC-2010161286

PATIENT

DRUGS (2)
  1. PRISTIQ [Suspect]
     Dosage: 100 MG, 1X/DAY
  2. ESCITALOPRAM [Suspect]

REACTIONS (2)
  - DEPRESSION [None]
  - DRUG INEFFECTIVE [None]
